FAERS Safety Report 22034402 (Version 1)
Quarter: 2023Q1

REPORT INFORMATION
  Report Type: Spontaneous
  Country: US (occurrence: None)
  Receive Date: 20230222
  Receipt Date: 20230222
  Transmission Date: 20230417
  Serious: Yes (Hospitalization)
  Sender: FDA-Public Use
  Company Number: None

PATIENT
  Age: 18 Year
  Sex: Female
  Weight: 51.7 kg

DRUGS (5)
  1. HYDROXYZINE [Suspect]
     Active Substance: HYDROXYZINE HYDROCHLORIDE
     Indication: Anxiety
     Dosage: OTHER FREQUENCY : ONCE;?
     Route: 048
     Dates: start: 20230222
  2. FAMOTIDINE [Concomitant]
     Active Substance: FAMOTIDINE
  3. OLANZAPINE [Concomitant]
     Active Substance: OLANZAPINE
  4. FLUOXETINE [Concomitant]
     Active Substance: FLUOXETINE HYDROCHLORIDE
  5. GUANFACINE [Concomitant]
     Active Substance: GUANFACINE

REACTIONS (1)
  - Supraventricular tachycardia [None]

NARRATIVE: CASE EVENT DATE: 20230222
